FAERS Safety Report 20437516 (Version 1)
Quarter: 2022Q1

REPORT INFORMATION
  Report Type: Other
  Country: US (occurrence: None)
  Receive Date: 20220207
  Receipt Date: 20220207
  Transmission Date: 20220423
  Serious: Yes (Other)
  Sender: FDA-Public Use
  Company Number: US-ROCHE-3016176

PATIENT
  Age: 67 Year
  Sex: Female
  Weight: 40.860 kg

DRUGS (8)
  1. OCREVUS [Suspect]
     Active Substance: OCRELIZUMAB
     Indication: Multiple sclerosis
     Dosage: PREVIOUS DATE OF TREATMENT: 06/FEB/2020, 10/AUG/2020, 10/FEB/2021 AND 10/AUG/2021
     Route: 042
     Dates: start: 2018
  2. SYNTHROID [Concomitant]
     Active Substance: LEVOTHYROXINE SODIUM
  3. METOPROLOL [Concomitant]
     Active Substance: METOPROLOL
  4. ATORVASTATIN [Concomitant]
     Active Substance: ATORVASTATIN
  5. AMBIEN [Concomitant]
     Active Substance: ZOLPIDEM TARTRATE
  6. IRON [Concomitant]
     Active Substance: IRON
  7. VITAMIN D3 [Concomitant]
     Active Substance: CHOLECALCIFEROL
  8. MELOXICAM [Concomitant]
     Active Substance: MELOXICAM

REACTIONS (4)
  - Multiple sclerosis relapse [Unknown]
  - Weight decreased [Recovered/Resolved]
  - COVID-19 [Unknown]
  - Anaemia [Unknown]

NARRATIVE: CASE EVENT DATE: 20211102
